FAERS Safety Report 23935544 (Version 2)
Quarter: 2024Q2

REPORT INFORMATION
  Report Type: Report from Study
  Country: US (occurrence: US)
  Receive Date: 20240604
  Receipt Date: 20240609
  Transmission Date: 20240716
  Serious: Yes (Hospitalization, Other)
  Sender: FDA-Public Use
  Company Number: US-JAZZ-2022-US-004247

PATIENT
  Age: 65 Year
  Sex: Male

DRUGS (33)
  1. XYREM [Suspect]
     Active Substance: SODIUM OXYBATE
     Indication: Narcolepsy
     Dosage: 3 GRAM, BID
     Route: 048
     Dates: start: 200905, end: 200906
  2. XYREM [Suspect]
     Active Substance: SODIUM OXYBATE
     Indication: Cataplexy
     Dosage: DOSE ADJUSTMENTS
     Route: 048
     Dates: start: 200906, end: 201011
  3. XYREM [Suspect]
     Active Substance: SODIUM OXYBATE
     Indication: Somnolence
     Dosage: 4 GRAM, BID
     Route: 048
     Dates: start: 201011
  4. SYNTHROID [Concomitant]
     Active Substance: LEVOTHYROXINE SODIUM
     Dosage: 0000
     Dates: start: 20100101
  5. CABERGOLINE [Concomitant]
     Active Substance: CABERGOLINE
     Dosage: 0020
     Dates: start: 20151226
  6. SOMAVERT [Concomitant]
     Active Substance: PEGVISOMANT
     Dosage: 0010
     Dates: start: 20151226
  7. LISINOPRIL [Concomitant]
     Active Substance: LISINOPRIL
     Dosage: 0010
     Dates: start: 20151226
  8. ASPIRIN [Concomitant]
     Active Substance: ASPIRIN
     Dosage: 0040
     Dates: start: 20151226
  9. BUPROPION HYDROCHLORIDE [Concomitant]
     Active Substance: BUPROPION HYDROCHLORIDE
     Dosage: UNK
     Dates: start: 20151226
  10. TESTOSTERONE CYPIONATE [Concomitant]
     Active Substance: TESTOSTERONE CYPIONATE
     Dosage: UNK
     Dates: start: 20140723
  11. NASONEX [Concomitant]
     Active Substance: MOMETASONE FUROATE
     Dosage: 0000
     Dates: start: 20140723
  12. CANAGLIFLOZIN\METFORMIN HYDROCHLORIDE [Concomitant]
     Active Substance: CANAGLIFLOZIN\METFORMIN HYDROCHLORIDE
     Dosage: UNK
     Dates: start: 20150601
  13. CARVEDILOL [Concomitant]
     Active Substance: CARVEDILOL
     Dosage: 0020
     Dates: start: 20151226
  14. METFORMIN HYDROCHLORIDE [Concomitant]
     Active Substance: METFORMIN HYDROCHLORIDE
     Dosage: UNK
     Dates: start: 20151226
  15. TRIAMCINOLONE [Concomitant]
     Active Substance: TRIAMCINOLONE
     Dosage: 0020
     Dates: start: 20151226
  16. IRON [IRON DEXTRAN] [Concomitant]
     Dosage: UNK
     Dates: start: 20151226
  17. NITROLINGUAL [Concomitant]
     Active Substance: NITROGLYCERIN
     Dosage: 0010
     Dates: start: 20151226
  18. VISION PLUS [Concomitant]
     Dosage: 0010
     Dates: start: 20151226
  19. FISH OIL\OMEGA-3 FATTY ACIDS [Concomitant]
     Active Substance: FISH OIL\OMEGA-3 FATTY ACIDS
     Dosage: UNK
     Dates: start: 20151226
  20. PIOGLITAZONE [Concomitant]
     Active Substance: PIOGLITAZONE
     Dosage: UNK
     Dates: start: 20151226
  21. ESOMEPRAZOLE SODIUM [Concomitant]
     Active Substance: ESOMEPRAZOLE SODIUM
     Dosage: UNK 40 MG VIAL
     Dates: start: 20151226
  22. CLINPRO 5000 [Concomitant]
     Active Substance: SODIUM FLUORIDE
     Dosage: 0010
     Dates: start: 20151226
  23. LYRICA [Concomitant]
     Active Substance: PREGABALIN
     Dosage: 0010
     Dates: start: 20151226
  24. PRISTIQ EXTENDED-RELEASE [Concomitant]
     Active Substance: DESVENLAFAXINE SUCCINATE
     Dosage: 0000
     Dates: start: 20160108
  25. DEXTROAMPHETAMINE [Concomitant]
     Active Substance: DEXTROAMPHETAMINE
     Dosage: UNK
     Dates: start: 20151226
  26. ATORVASTATIN [Concomitant]
     Active Substance: ATORVASTATIN
     Dosage: UNK
  27. VITAMIN B12 [Concomitant]
     Active Substance: CYANOCOBALAMIN
     Dosage: UNK
  28. ESOMEPRAZOLE MAGNESIUM [Concomitant]
     Active Substance: ESOMEPRAZOLE MAGNESIUM
     Dosage: UNK
  29. ISOSORBIDE MONONITRATE [Concomitant]
     Active Substance: ISOSORBIDE MONONITRATE
     Dosage: UNK
  30. LEVOXYL [Concomitant]
     Active Substance: LEVOTHYROXINE SODIUM
     Dosage: UNK
  31. KAPSPARGO [Concomitant]
     Active Substance: METOPROLOL SUCCINATE
     Dosage: UNK
  32. MELOXICAM [Concomitant]
     Active Substance: MELOXICAM
  33. ADDERALL [Concomitant]
     Active Substance: AMPHETAMINE ASPARTATE\AMPHETAMINE SULFATE\DEXTROAMPHETAMINE SACCHARATE\DEXTROAMPHETAMINE SULFATE
     Dosage: UNK
     Dates: start: 20151226

REACTIONS (3)
  - Pulmonary embolism [Recovered/Resolved]
  - Kidney infection [Unknown]
  - Product administration interrupted [Unknown]

NARRATIVE: CASE EVENT DATE: 20220201
